FAERS Safety Report 4974838-6 (Version None)
Quarter: 2006Q1

REPORT INFORMATION
  Report Type: 
  Country: None (occurrence: None)
  Receive Date: 20060227
  Receipt Date: 20050222
  Transmission Date: 20060701
  Serious: Yes (Hospitalization)
  Sender: FDA-Public Use
  Company Number: 05P-163-0291787-00

PATIENT
  Age: 74 Year
  Sex: Male
  Weight: 70.3075 kg

DRUGS (7)
  1. VICODIN [Suspect]
     Indication: PAIN
     Dosage: ORAL
     Route: 048
     Dates: start: 20050113, end: 20050118
  2. NITROGLYCERIN [Suspect]
     Dosage: 216.66 ML, INTRAVENOUS
     Route: 042
     Dates: start: 20050111, end: 20050112
  3. ATORVASTATIN CALCIUM [Concomitant]
  4. LEXAPRO [Concomitant]
  5. CLOPIDOGREL BISULFATE [Concomitant]
  6. LOSARTAN POTASSIUM [Concomitant]
  7. ACETYLSALICYLIC ACID SRT [Concomitant]

REACTIONS (14)
  - ANGIOPATHY [None]
  - ASTHENIA [None]
  - CARDIOMEGALY [None]
  - EXTENSOR PLANTAR RESPONSE [None]
  - FACIAL PALSY [None]
  - LETHARGY [None]
  - LUNG INFILTRATION [None]
  - MENTAL STATUS CHANGES [None]
  - PLEURAL EFFUSION [None]
  - PNEUMOTHORAX [None]
  - PULMONARY GRANULOMA [None]
  - RESPIRATORY FAILURE [None]
  - SUBCUTANEOUS EMPHYSEMA [None]
  - TONGUE PARALYSIS [None]
